FAERS Safety Report 6355821-5 (Version None)
Quarter: 2009Q3

REPORT INFORMATION
  Report Type: 
  Country: None (occurrence: None)
  Receive Date: 20090911
  Receipt Date: 20090911
  Transmission Date: 20100115
  Serious: No
  Sender: FDA-Public Use
  Company Number: None

PATIENT
  Age: 21 Year
  Sex: Female

DRUGS (1)
  1. IMPLANON [Suspect]
     Indication: CONTRACEPTION
     Dosage: 1 ROD SUB Q 1/19/09 INSERTION
     Route: 058
     Dates: start: 20090119

REACTIONS (2)
  - PREGNANCY TEST FALSE POSITIVE [None]
  - PREGNANCY TEST URINE POSITIVE [None]
